FAERS Safety Report 8554323-5 (Version None)
Quarter: 2012Q3

REPORT INFORMATION
  Report Type: 
  Country: None (occurrence: None)
  Receive Date: 20120731
  Receipt Date: 20120716
  Transmission Date: 20120928
  Serious: No
  Sender: FDA-Public Use
  Company Number: US-009507513-1207USA005241

PATIENT

DRUGS (2)
  1. JANUMET XR [Suspect]
     Indication: DIABETES MELLITUS
     Dosage: UNK MG, BID
     Route: 048
     Dates: start: 20120401
  2. VICODIN [Concomitant]
     Dosage: UNK

REACTIONS (7)
  - EATING DISORDER [None]
  - MOBILITY DECREASED [None]
  - DIZZINESS [None]
  - NAUSEA [None]
  - VERTIGO [None]
  - DECREASED APPETITE [None]
  - HEART RATE INCREASED [None]
